FAERS Safety Report 8159961-X (Version None)
Quarter: 2012Q1

REPORT INFORMATION
  Report Type: 
  Country: None (occurrence: None)
  Receive Date: 20120223
  Receipt Date: 20120216
  Transmission Date: 20120608
  Serious: Yes (Hospitalization)
  Sender: FDA-Public Use
  Company Number: US-GLAXOSMITHKLINE-A0833069A

PATIENT
  Age: 46 Year
  Sex: Male
  Weight: 122.7 kg

DRUGS (11)
  1. MEVACOR [Concomitant]
  2. LOVASTATIN [Concomitant]
     Dates: end: 20071224
  3. STOOL SOFTENER [Concomitant]
     Dates: end: 20071224
  4. CHOLESTYRAMINE [Concomitant]
     Dates: end: 20071224
  5. ENALAPRIL MALEATE [Concomitant]
     Dates: end: 20071224
  6. METFORMIN HCL [Concomitant]
     Dates: end: 20071224
  7. AVANDIA [Suspect]
     Indication: DIABETES MELLITUS
     Dosage: 4MG TWICE PER DAY
     Route: 048
     Dates: start: 20031201, end: 20071224
  8. METOLAZONE [Concomitant]
     Dates: end: 20071224
  9. LOPRESSOR [Concomitant]
  10. VASOTEC [Concomitant]
  11. METOPROLOL [Concomitant]
     Dates: end: 20071224

REACTIONS (3)
  - CARDIAC FAILURE CONGESTIVE [None]
  - RENAL FAILURE ACUTE [None]
  - INTRACARDIAC THROMBUS [None]
